FAERS Safety Report 6668424-X (Version None)
Quarter: 2010Q2

REPORT INFORMATION
  Report Type: 
  Country: None (occurrence: None)
  Receive Date: 20100406
  Receipt Date: 20100325
  Transmission Date: 20101027
  Serious: Yes (Other)
  Sender: FDA-Public Use
  Company Number: PHHY2010IL19638

PATIENT

DRUGS (2)
  1. PAMIDRONATE DISODIUM [Suspect]
     Dosage: 90 MG EVERY 3 TO 4 WEEKS
     Route: 042
  2. ZOLEDRONIC ACID [Suspect]
     Dosage: 4 MG EVERY 3 TO 4 WEEKS
     Route: 042

REACTIONS (2)
  - DENTAL IMPLANTATION [None]
  - OSTEONECROSIS [None]
